FAERS Safety Report 7338367-7 (Version None)
Quarter: 2011Q1

REPORT INFORMATION
  Report Type: 
  Country: None (occurrence: None)
  Receive Date: 20110303
  Receipt Date: 20110303
  Transmission Date: 20110831
  Serious: Yes (Hospitalization)
  Sender: FDA-Public Use
  Company Number: None

PATIENT
  Age: 67 Year
  Sex: Male

DRUGS (1)
  1. METOPROLOL TARTRATE [Suspect]
     Indication: ATRIAL FIBRILLATION
     Dosage: 5 MG ONCE IV
     Route: 042
     Dates: start: 20100813, end: 20100813

REACTIONS (2)
  - HYPOTENSION [None]
  - BRADYCARDIA [None]
